FAERS Safety Report 4323324-5 (Version None)
Quarter: 2004Q1

REPORT INFORMATION
  Report Type: 
  Country: None (occurrence: None)
  Receive Date: 20040322
  Receipt Date: 20040315
  Transmission Date: 20041129
  Serious: Yes (Death, Hospitalization)
  Sender: FDA-Public Use
  Company Number: 04-0017 PO

PATIENT
  Age: 8 Year
  Sex: Female

DRUGS (1)
  1. PONTAL SYRUP (MEFANAMIC ACID) PONSTEL NDA 15-034 [Suspect]
     Dosage: PO
     Route: 048
     Dates: start: 19970101

REACTIONS (2)
  - ENCEPHALOPATHY [None]
  - MULTI-ORGAN FAILURE [None]
